FAERS Safety Report 8431494-2 (Version None)
Quarter: 2012Q2

REPORT INFORMATION
  Report Type: 
  Country: None (occurrence: None)
  Receive Date: 20120613
  Receipt Date: 20120606
  Transmission Date: 20120825
  Serious: Yes (Hospitalization)
  Sender: FDA-Public Use
  Company Number: FR-SHIRE-SPV1-2012-00528

PATIENT
  Sex: Female

DRUGS (3)
  1. ANAGRELIDE HYDROCHLORIDE [Suspect]
     Indication: ESSENTIAL THROMBOCYTHAEMIA
     Dosage: 4.5 MG, 1X/DAY:QD
     Route: 048
     Dates: start: 20040101, end: 20110922
  2. ASPIRIN [Suspect]
     Indication: CEREBROVASCULAR ACCIDENT
     Dosage: 75 MG, 1X/DAY:QD
     Route: 048
     Dates: start: 20090101, end: 20110922
  3. AVLOCARDYL                         /00030001/ [Concomitant]
     Indication: PORTAL HYPERTENSION
     Dosage: 40 MG, 2X/DAY:BID
     Route: 048

REACTIONS (3)
  - HAEMOPTYSIS [None]
  - PULMONARY ALVEOLAR HAEMORRHAGE [None]
  - MELAENA [None]
